FAERS Safety Report 7552070-X (Version None)
Quarter: 2011Q2

REPORT INFORMATION
  Report Type: 
  Country: None (occurrence: None)
  Receive Date: 20110616
  Receipt Date: 20110602
  Transmission Date: 20111010
  Serious: Yes (Hospitalization)
  Sender: FDA-Public Use
  Company Number: US-JNJFOC-20110508986

PATIENT
  Sex: Male
  Weight: 81 kg

DRUGS (3)
  1. ENTOCORT EC [Concomitant]
  2. REMICADE [Suspect]
     Indication: INFLAMMATORY BOWEL DISEASE
     Dosage: MG/KG
     Route: 042
     Dates: start: 20020827
  3. ENTOCORT EC [Concomitant]

REACTIONS (2)
  - VIITH NERVE PARALYSIS [None]
  - PHARYNGITIS STREPTOCOCCAL [None]
